FAERS Safety Report 13455104 (Version 1)
Quarter: 2017Q2

REPORT INFORMATION
  Report Type: Spontaneous
  Country: US (occurrence: US)
  Receive Date: 20170418
  Receipt Date: 20170418
  Transmission Date: 20170830
  Serious: Yes (Disabling)
  Sender: FDA-Public Use
  Company Number: None

PATIENT
  Age: 40 Year
  Sex: Female
  Weight: 51.3 kg

DRUGS (5)
  1. PREDNISONE. [Concomitant]
     Active Substance: PREDNISONE
  2. MAGNESIUM [Concomitant]
     Active Substance: MAGNESIUM
  3. JUVEDERM [Suspect]
     Active Substance: HYALURONIC ACID
  4. VITAMIN B12 [Concomitant]
     Active Substance: CYANOCOBALAMIN
  5. DOXYCYCLINE. [Concomitant]
     Active Substance: DOXYCYCLINE

REACTIONS (14)
  - Hypoacusis [None]
  - Acne [None]
  - Ear discomfort [None]
  - Hypoaesthesia [None]
  - Myalgia [None]
  - Cyst [None]
  - Vascular stenosis [None]
  - Headache [None]
  - Paraesthesia [None]
  - Arthralgia [None]
  - Visual impairment [None]
  - Sinusitis [None]
  - Rash [None]
  - Pain of skin [None]

NARRATIVE: CASE EVENT DATE: 20170219
